FAERS Safety Report 13653393 (Version 1)
Quarter: 2017Q2

REPORT INFORMATION
  Report Type: Spontaneous
  Country: US (occurrence: US)
  Receive Date: 20170614
  Receipt Date: 20170614
  Transmission Date: 20170830
  Serious: Yes (Other)
  Sender: FDA-Public Use
  Company Number: US-ROCHE-1410368

PATIENT
  Sex: Female

DRUGS (2)
  1. XELODA [Suspect]
     Active Substance: CAPECITABINE
     Indication: BREAST CANCER
     Dosage: 14 DAYS ON, 7 DAYS OFF 3 TABS
     Route: 048
     Dates: start: 20140114, end: 20140514
  2. XELODA [Suspect]
     Active Substance: CAPECITABINE
     Dosage: 2 TABS IN AM AND 1 TAB IN EVENING
     Route: 048
     Dates: start: 20140529

REACTIONS (4)
  - Joint swelling [Not Recovered/Not Resolved]
  - Diarrhoea [Recovering/Resolving]
  - Thrombosis [Unknown]
  - Constipation [Recovering/Resolving]

NARRATIVE: CASE EVENT DATE: 20140523
